FAERS Safety Report 7213158-6 (Version None)
Quarter: 2010Q4

REPORT INFORMATION
  Report Type: 
  Country: None (occurrence: None)
  Receive Date: 20101227
  Receipt Date: 20101208
  Transmission Date: 20110411
  Serious: Yes (Death, Hospitalization)
  Sender: FDA-Public Use
  Company Number: 2010005544

PATIENT
  Age: 64 Year
  Sex: Female

DRUGS (5)
  1. ERLOTINIB HYDROCHLORIDE [Suspect]
     Indication: GASTRIC CANCER STAGE IV
     Dosage: (100 MG, DAILY), ORAL
     Route: 048
     Dates: start: 20101004, end: 20101118
  2. LBH589 [Suspect]
     Indication: GASTRIC CANCER STAGE IV
     Dosage: (20 MG, 4 X PER 21 DAY), ORAL
     Route: 048
     Dates: start: 20101011, end: 20101118
  3. LBH589 [Suspect]
  4. MAGNESIUM OXIDE (MAGNESIUM OXIDE) [Concomitant]
  5. ZOFRAN [Concomitant]

REACTIONS (10)
  - BLOOD ALKALINE PHOSPHATASE INCREASED [None]
  - BLOOD BILIRUBIN INCREASED [None]
  - BLOOD SODIUM DECREASED [None]
  - BLOOD UREA INCREASED [None]
  - DEHYDRATION [None]
  - GASTROINTESTINAL CARCINOMA [None]
  - MALIGNANT NEOPLASM PROGRESSION [None]
  - NAUSEA [None]
  - PLATELET COUNT DECREASED [None]
  - VOMITING [None]
